FAERS Safety Report 5604314-9 (Version None)
Quarter: 2008Q1

REPORT INFORMATION
  Report Type: 
  Country: None (occurrence: None)
  Receive Date: 20080128
  Receipt Date: 20080122
  Transmission Date: 20080703
  Serious: Yes (Other)
  Sender: FDA-Public Use
  Company Number: A0704599A

PATIENT
  Sex: Male

DRUGS (3)
  1. AVODART [Suspect]
     Indication: BENIGN PROSTATIC HYPERPLASIA
     Dosage: .5MG PER DAY
     Route: 048
     Dates: start: 20070701
  2. KALETRA [Concomitant]
  3. RITONAVIR [Concomitant]

REACTIONS (3)
  - MUSCLE SPASMS [None]
  - NIGHT SWEATS [None]
  - PERONEAL NERVE PALSY [None]
